FAERS Safety Report 6391044-1 (Version None)
Quarter: 2009Q4

REPORT INFORMATION
  Report Type: 
  Country: None (occurrence: None)
  Receive Date: 20091006
  Receipt Date: 20091006
  Transmission Date: 20100525
  Serious: Yes (Life-Threatening, Hospitalization)
  Sender: FDA-Public Use
  Company Number: None

PATIENT
  Age: 55 Year
  Sex: Male
  Weight: 56.1 kg

DRUGS (1)
  1. DEXTROXE/HEPARIN [Suspect]
     Indication: SURGERY
     Dosage: 11.6 ML PER HOUR IV
     Route: 042
     Dates: start: 20090422, end: 20090425

REACTIONS (7)
  - DIVERTICULUM [None]
  - GASTRIC HAEMORRHAGE [None]
  - HAEMOGLOBIN DECREASED [None]
  - LIVER DISORDER [None]
  - SPLEEN DISORDER [None]
  - ULCER [None]
  - ULCER HAEMORRHAGE [None]
